FAERS Safety Report 22156868 (Version 5)
Quarter: 2025Q2

REPORT INFORMATION
  Report Type: Spontaneous
  Country: BR (occurrence: BR)
  Receive Date: 20230330
  Receipt Date: 20250604
  Transmission Date: 20250717
  Serious: Yes (Hospitalization, Other)
  Sender: BIOMARIN
  Company Number: BR-SA-SAC20230324000890

PATIENT

DRUGS (7)
  1. LARONIDASE [Suspect]
     Active Substance: LARONIDASE
     Indication: Mucopolysaccharidosis I
     Dosage: UNK UNK, QW
     Route: 041
     Dates: start: 20221024, end: 20230405
  2. LARONIDASE [Suspect]
     Active Substance: LARONIDASE
     Dosage: UNK UNK, QW
     Route: 041
     Dates: start: 2023
  3. LARONIDASE [Suspect]
     Active Substance: LARONIDASE
     Dosage: 4 DF, QW
     Route: 041
     Dates: start: 20221001, end: 20230405
  4. CARVEDILOL [Concomitant]
     Active Substance: CARVEDILOL
     Indication: Hypertension
  5. ENALAPRIL [Concomitant]
     Active Substance: ENALAPRIL
     Indication: Hypertension
  6. DORZOLAMIDE HYDROCHLORIDE [Concomitant]
     Active Substance: DORZOLAMIDE HYDROCHLORIDE
     Indication: Product used for unknown indication
  7. LATANOPROST [Concomitant]
     Active Substance: LATANOPROST
     Indication: Product used for unknown indication

REACTIONS (16)
  - Pneumonia [Recovering/Resolving]
  - Device related infection [Unknown]
  - Cardiomyopathy [Unknown]
  - Shunt occlusion [Not Recovered/Not Resolved]
  - Bacterial infection [Recovered/Resolved]
  - Blindness [Not Recovered/Not Resolved]
  - Brain abscess [Not Recovered/Not Resolved]
  - Hydrocephalus [Recovering/Resolving]
  - Motor developmental delay [Unknown]
  - Gait inability [Recovering/Resolving]
  - Hypertension [Not Recovered/Not Resolved]
  - Mobility decreased [Not Recovered/Not Resolved]
  - Weight decreased [Not Recovered/Not Resolved]
  - Decreased appetite [Not Recovered/Not Resolved]
  - Nausea [Not Recovered/Not Resolved]
  - Fatigue [Unknown]

NARRATIVE: CASE EVENT DATE: 20221201
